FAERS Safety Report 9556888 (Version 1)
Quarter: 2013Q3

REPORT INFORMATION
  Report Type: Spontaneous
  Country: US (occurrence: US)
  Receive Date: 20130926
  Receipt Date: 20130926
  Transmission Date: 20140515
  Serious: Yes (Other)
  Sender: FDA-Public Use
  Company Number: US-PFIZER INC-2013274681

PATIENT
  Sex: Female

DRUGS (2)
  1. LYRICA [Suspect]
     Dosage: 75MG ONCE IN MORNING, 75MG ONCE IN AFTERNOON AND 150MG ONCE IN NIGHT
     Dates: end: 2013
  2. LYRICA [Suspect]
     Dosage: UNK
     Dates: start: 2013

REACTIONS (9)
  - Suicidal ideation [Unknown]
  - Impaired driving ability [Unknown]
  - Somnolence [Unknown]
  - Somnolence [Unknown]
  - Somnolence [Unknown]
  - Fatigue [Unknown]
  - Withdrawal syndrome [Unknown]
  - Back pain [Unknown]
  - Muscular weakness [Unknown]
